FAERS Safety Report 17043217 (Version 2)
Quarter: 2019Q4

REPORT INFORMATION
  Report Type: Spontaneous
  Country: US (occurrence: US)
  Receive Date: 20191118
  Receipt Date: 20191126
  Transmission Date: 20200122
  Serious: No
  Sender: FDA-Public Use
  Company Number: US-VERTEX PHARMACEUTICALS-2019-011288

PATIENT
  Age: 8 Year
  Sex: Male
  Weight: 18 kg

DRUGS (10)
  1. ORKAMBI [Suspect]
     Active Substance: IVACAFTOR\LUMACAFTOR
     Indication: CYSTIC FIBROSIS
     Dosage: TAKE 2 TABLETS EVERY 12 HOURS
     Route: 048
     Dates: start: 201804
  2. LEVOXYL [Concomitant]
     Active Substance: LEVOTHYROXINE SODIUM
     Dosage: 0.5 TABLET (62.5 MICROGRAM) ON MON, TUE, WED, THURS
     Dates: start: 20190613
  3. FLONASE [Concomitant]
     Active Substance: FLUTICASONE PROPIONATE
     Dosage: 50 MCG/ ACT NASAL SPRAY, DAILY
     Route: 045
  4. PROVENTIL [SALBUTAMOL SULFATE] [Concomitant]
     Indication: CYSTIC FIBROSIS
     Dosage: 2.5 MG/3ML, 1 VIAL BY NEBULIZER, TWICE DAILY
     Dates: start: 20190411
  5. LEVOTHYROXINE. [Concomitant]
     Active Substance: LEVOTHYROXINE
     Dosage: 1 TABLET (75 MICROGRAM) ON FRI, SAT AND SUN
     Dates: start: 20190613
  6. VENTOLIN HFA [Concomitant]
     Active Substance: ALBUTEROL SULFATE
     Indication: CYSTIC FIBROSIS
     Dosage: 2 PUFFS (108 (90 BASE) MCG/ACT)
  7. EPINEPHRINE. [Concomitant]
     Active Substance: EPINEPHRINE
     Indication: FOOD ALLERGY
     Dosage: 0.15MG/ 0.15ML
     Dates: start: 20190722
  8. PERTZYE [Concomitant]
     Active Substance: PANCRELIPASE AMYLASE\PANCRELIPASE LIPASE\PANCRELIPASE PROTEASE
     Indication: CYSTIC FIBROSIS
     Dosage: 2 CAPS, 4 TIMES A DAY, 1 CAPSULE WITH SNACKS
     Route: 048
     Dates: start: 20190613
  9. PULMOZYME [Concomitant]
     Active Substance: DORNASE ALFA
     Dosage: 1 MILLIGRAM PER MILLILITRE (2.5 ML NEB DAILY)
  10. HYPERSAL [Concomitant]
     Active Substance: SODIUM CHLORIDE
     Dosage: 7 %, 4 ML VIA NEBULIZER TWICE DAILY

REACTIONS (1)
  - Rash macular [Not Recovered/Not Resolved]

NARRATIVE: CASE EVENT DATE: 20191112
